FAERS Safety Report 6354883-9 (Version None)
Quarter: 2009Q3

REPORT INFORMATION
  Report Type: 
  Country: None (occurrence: None)
  Receive Date: 20090914
  Receipt Date: 20090910
  Transmission Date: 20100115
  Serious: Yes (Hospitalization, Disabling)
  Sender: FDA-Public Use
  Company Number: US-MERCK-0808USA04790

PATIENT
  Age: 66 Year
  Sex: Female

DRUGS (12)
  1. VYTORIN [Suspect]
     Indication: BLOOD CHOLESTEROL INCREASED
     Route: 048
     Dates: start: 20061221, end: 20070110
  2. HUMALOG [Concomitant]
     Route: 065
  3. MANTAI [Concomitant]
     Route: 065
  4. SYNTHROID [Concomitant]
     Route: 065
  5. FOSAMAX [Concomitant]
     Route: 048
  6. ASPIRIN [Concomitant]
     Route: 065
  7. ALTACE [Concomitant]
     Route: 065
  8. ATENOLOL [Concomitant]
     Route: 065
  9. HYDROCHLOROTHIAZIDE [Concomitant]
     Route: 065
  10. TYLENOL (CAPLET) [Concomitant]
     Route: 065
  11. APRESOLINE [Concomitant]
     Route: 065
  12. ZOCOR [Suspect]
     Route: 048

REACTIONS (9)
  - ALOPECIA [None]
  - COMPLEX REGIONAL PAIN SYNDROME [None]
  - DRUG TOXICITY [None]
  - GAIT DISTURBANCE [None]
  - MOVEMENT DISORDER [None]
  - MYALGIA [None]
  - NERVE INJURY [None]
  - OEDEMA [None]
  - PAIN IN EXTREMITY [None]
